FAERS Safety Report 13546159 (Version 3)
Quarter: 2017Q2

REPORT INFORMATION
  Report Type: Report from Study
  Country: JP (occurrence: JP)
  Receive Date: 20170515
  Receipt Date: 20170610
  Transmission Date: 20170830
  Serious: Yes (Death, Life-Threatening, Hospitalization, Other)
  Sender: FDA-Public Use
  Company Number: JP-AMGEN-JPNCT2017073476

PATIENT
  Age: 56 Year
  Sex: Female

DRUGS (18)
  1. CARFILZOMIB [Suspect]
     Active Substance: CARFILZOMIB
     Dosage: 70 MG/M2, PER CHEMO REGIM
     Route: 042
  2. LOPERAMIDE HYDROCHLORIDE. [Concomitant]
     Active Substance: LOPERAMIDE HYDROCHLORIDE
     Dosage: 1 UNK, UNK
     Route: 048
     Dates: start: 20120803, end: 20170511
  3. TERPERAN [Concomitant]
     Active Substance: METOCLOPRAMIDE HYDROCHLORIDE
     Dosage: 5 MG, UNK
     Route: 048
     Dates: start: 20160414, end: 20170511
  4. POSTERISAN FORTE [Concomitant]
     Active Substance: LIDOCAINE
     Dosage: 2 G, UNK
     Route: 061
     Dates: start: 20110524, end: 20170510
  5. SODIUM CHLORIDE. [Concomitant]
     Active Substance: SODIUM CHLORIDE
     Dosage: 250 ML, UNK
     Route: 042
     Dates: start: 20160210, end: 20170510
  6. ZOLPIDEM TARTRATE. [Concomitant]
     Active Substance: ZOLPIDEM TARTRATE
     Dosage: 5 MG, UNK
     Route: 048
     Dates: start: 20131129, end: 20170510
  7. CARFILZOMIB [Suspect]
     Active Substance: CARFILZOMIB
     Indication: PLASMA CELL MYELOMA
     Dosage: 20 MG/M2, PER CHEMO REGIM
     Route: 042
     Dates: start: 20160114, end: 20170510
  8. FAMOTIDINE. [Concomitant]
     Active Substance: FAMOTIDINE
     Dosage: 20 MG, UNK
     Route: 048
     Dates: start: 20110827, end: 20170510
  9. URSODEOXYCHOLIC ACID [Concomitant]
     Active Substance: URSODIOL
     Dosage: 100 MG, UNK
     Route: 048
     Dates: start: 20121002, end: 20170511
  10. ACICLOVIR [Concomitant]
     Active Substance: ACYCLOVIR
     Dosage: 200 MG, UNK
     Route: 048
     Dates: start: 20140221, end: 20170511
  11. ADEFURONIC [Concomitant]
     Active Substance: DICLOFENAC SODIUM
     Dosage: 25 MG, UNK
     Route: 048
     Dates: start: 20130315, end: 20170511
  12. DEXAMETHASONE. [Suspect]
     Active Substance: DEXAMETHASONE
     Indication: PLASMA CELL MYELOMA
     Dosage: 40 MG, PER CHEMO REGIM
     Route: 048
     Dates: start: 20160114, end: 20170510
  13. LAC-B GRANULAR POWDER N [Concomitant]
     Dosage: 1 G, UNK
     Route: 048
     Dates: start: 20120803, end: 20170511
  14. TRYPTANOL [Concomitant]
     Active Substance: AMITRIPTYLINE
     Dosage: 10 MG, UNK
     Route: 048
     Dates: start: 20090324, end: 20170510
  15. OXYCODONE [Concomitant]
     Active Substance: OXYCODONE
     Dosage: 30-80 MG, UNK
     Route: 048
     Dates: start: 20140626, end: 20170511
  16. EPERISONE HYDROCHLORIDE [Concomitant]
     Active Substance: EPERISONE HYDROCHLORIDE
     Dosage: 50 MG, UNK
     Route: 048
     Dates: start: 20160506, end: 20170511
  17. MECOBALAMIN TOWA [Concomitant]
     Dosage: 500 MUG, UNK
     Route: 048
     Dates: start: 20110813, end: 20170511
  18. FERROUS SODIUM CITRATE [Concomitant]
     Active Substance: SODIUM FERROUS CITRATE
     Dosage: 50 MG, UNK
     Route: 048
     Dates: start: 20141207, end: 20170510

REACTIONS (1)
  - Acute lung injury [Fatal]

NARRATIVE: CASE EVENT DATE: 20170511
